FAERS Safety Report 8359361-3 (Version None)
Quarter: 2012Q2

REPORT INFORMATION
  Report Type: 
  Country: None (occurrence: None)
  Receive Date: 20120514
  Receipt Date: 20120514
  Transmission Date: 20120825
  Serious: Yes (Other)
  Sender: FDA-Public Use
  Company Number: None

PATIENT
  Age: 45 Year
  Sex: Female
  Weight: 72.5755 kg

DRUGS (1)
  1. LOVASTATIN [Suspect]
     Indication: MYALGIA
     Dosage: 20MG ONCE DAILY PO
     Route: 048
     Dates: start: 20120301, end: 20120510

REACTIONS (1)
  - MYALGIA [None]
